FAERS Safety Report 5956079-9 (Version None)
Quarter: 2008Q4

REPORT INFORMATION
  Report Type: 
  Country: None (occurrence: None)
  Receive Date: 20081118
  Receipt Date: 20081110
  Transmission Date: 20090506
  Serious: Yes (Other)
  Sender: FDA-Public Use
  Company Number: CN-JNJFOC-20081101635

PATIENT
  Age: 20 Month
  Sex: Female
  Weight: 13 kg

DRUGS (3)
  1. ANTUSS INFANTS DECONGESTANT + COUGH [Suspect]
     Dosage: 9-10 ML ONCE TOTAL
     Route: 048
  2. ANTUSS INFANTS DECONGESTANT + COUGH [Suspect]
     Indication: NASOPHARYNGITIS
     Route: 048
  3. GUAIFENESIN/METHYLEPHEDRINE/CHLORPHENAMINE [Concomitant]
     Indication: COUGH
     Route: 048

REACTIONS (2)
  - ACCIDENTAL DRUG INTAKE BY CHILD [None]
  - ACCIDENTAL OVERDOSE [None]
